FAERS Safety Report 10901783 (Version 1)
Quarter: 2015Q1

REPORT INFORMATION
  Report Type: Spontaneous
  Country: US (occurrence: None)
  Receive Date: 20150303
  Receipt Date: 20150303
  Transmission Date: 20150721
  Serious: Yes (Disabling)
  Sender: FDA-Public Use
  Company Number: None

PATIENT
  Age: 72 Year
  Sex: Male
  Weight: 87.09 kg

DRUGS (6)
  1. ASPIRIN. [Concomitant]
     Active Substance: ASPIRIN
  2. SAW PALMETTO [Concomitant]
     Active Substance: SAW PALMETTO
  3. VITAMIN D3 [Concomitant]
     Active Substance: CHOLECALCIFEROL
  4. MULTIVITAMIN [Concomitant]
     Active Substance: VITAMINS
  5. CRANBERRY EXTRACT [Concomitant]
  6. EUCERIN INTENSIVE REPAIR LOTION [Suspect]
     Active Substance: COSMETICS
     Indication: THERAPEUTIC SKIN CARE TOPICAL
     Dates: start: 20100101, end: 20141215

REACTIONS (2)
  - Precancerous skin lesion [None]
  - Squamous cell carcinoma [None]

NARRATIVE: CASE EVENT DATE: 20141215
